FAERS Safety Report 20065699 (Version 1)
Quarter: 2021Q4

REPORT INFORMATION
  Report Type: Spontaneous
  Country: BR (occurrence: BR)
  Receive Date: 20211113
  Receipt Date: 20211113
  Transmission Date: 20220304
  Serious: Yes (Other)
  Sender: FDA-Public Use
  Company Number: BR-NOVARTISPH-NVSC2021BR220741

PATIENT
  Age: 61 Year
  Sex: Female
  Weight: 56 kg

DRUGS (2)
  1. ZOMETA [Suspect]
     Active Substance: ZOLEDRONIC ACID
     Indication: Osteopenia
     Dosage: 4 MG SEMESTER
     Route: 042
     Dates: start: 20190910, end: 20210326
  2. ZOMETA [Suspect]
     Active Substance: ZOLEDRONIC ACID
     Dosage: 4 MG (4MG/100ML, 4 APPLICATIONS, 6 MONTHS APART)
     Route: 065
     Dates: start: 20210306

REACTIONS (7)
  - Tooth infection [Not Recovered/Not Resolved]
  - Tooth fracture [Unknown]
  - Tooth disorder [Unknown]
  - Bone loss [Not Recovered/Not Resolved]
  - Osteomyelitis [Not Recovered/Not Resolved]
  - Root canal infection [Not Recovered/Not Resolved]
  - Tooth loss [Not Recovered/Not Resolved]

NARRATIVE: CASE EVENT DATE: 20210501
